FAERS Safety Report 8501957-X (Version None)
Quarter: 2012Q3

REPORT INFORMATION
  Report Type: 
  Country: None (occurrence: None)
  Receive Date: 20120711
  Receipt Date: 20120618
  Transmission Date: 20120928
  Serious: No
  Sender: FDA-Public Use
  Company Number: CA-JNJFOC-20120610233

PATIENT
  Sex: Male
  Weight: 84.4 kg

DRUGS (3)
  1. REMICADE [Suspect]
     Indication: RHEUMATOID ARTHRITIS
     Route: 042
     Dates: start: 20071218
  2. METHOTREXATE [Concomitant]
     Route: 048
  3. ACETAMINOPHEN [Concomitant]
     Indication: ANALGESIC THERAPY
     Dosage: AS NECESSARY
     Route: 048

REACTIONS (7)
  - RHINORRHOEA [None]
  - MALAISE [None]
  - INFLUENZA [None]
  - PYREXIA [None]
  - NASOPHARYNGITIS [None]
  - HEADACHE [None]
  - PRODUCTIVE COUGH [None]
